FAERS Safety Report 8715889 (Version 3)
Quarter: 2013Q4

REPORT INFORMATION
  Report Type: Spontaneous
  Country: DK (occurrence: None)
  Receive Date: 20120725
  Receipt Date: 20121010
  Transmission Date: 20140711
  Serious: Yes (Hospitalization, Other)
  Sender: FDA-Public Use
  Company Number: AUR-APL-2012-03171

PATIENT
  Age: 72 Year
  Sex: Female

DRUGS (4)
  1. METFORMIN [Suspect]
     Indication: PRODUCT USED FOR UNKNOWN INDICATION
  2. DIGOXIN (DIGOXIN) [Concomitant]
  3. WARFARIN SODIUM [Concomitant]
  4. SIMVASTATIN [Concomitant]

REACTIONS (15)
  - Lactic acidosis [None]
  - Haemodialysis [None]
  - Chest pain [None]
  - Abdominal pain [None]
  - Dyspnoea [None]
  - Sepsis [None]
  - Dehydration [None]
  - Anuria [None]
  - Renal impairment [None]
  - White blood cell count increased [None]
  - Amylase increased [None]
  - Alanine aminotransferase increased [None]
  - Troponin I increased [None]
  - Blood creatine phosphokinase MB increased [None]
  - Blood glucose increased [None]
